FAERS Safety Report 8155240-5 (Version None)
Quarter: 2012Q1

REPORT INFORMATION
  Report Type: 
  Country: None (occurrence: None)
  Receive Date: 20120222
  Receipt Date: 20120213
  Transmission Date: 20120608
  Serious: No
  Sender: FDA-Public Use
  Company Number: US-BIOGENIDEC-2010BI019332

PATIENT
  Age: 38 Year
  Sex: Male

DRUGS (1)
  1. TYSABRI [Suspect]
     Indication: MULTIPLE SCLEROSIS
     Route: 042
     Dates: start: 20090924

REACTIONS (10)
  - MUSCULOSKELETAL STIFFNESS [None]
  - MUSCLE FATIGUE [None]
  - PAIN IN EXTREMITY [None]
  - TEMPERATURE INTOLERANCE [None]
  - FATIGUE [None]
  - NASOPHARYNGITIS [None]
  - HYPOAESTHESIA [None]
  - MYALGIA [None]
  - SLUGGISHNESS [None]
  - DRUG EFFECT DECREASED [None]
